FAERS Safety Report 7300962-9 (Version None)
Quarter: 2011Q1

REPORT INFORMATION
  Report Type: 
  Country: None (occurrence: None)
  Receive Date: 20110218
  Receipt Date: 20101216
  Transmission Date: 20110831
  Serious: Yes (Other)
  Sender: FDA-Public Use
  Company Number: US-RANBAXY-2010RR-40967

PATIENT
  Sex: Male

DRUGS (6)
  1. CIPROFLOXACIN [Suspect]
     Indication: INFECTION
     Route: 042
  2. PREDNISOLONE [Suspect]
     Dosage: 5 MG, UNK
     Dates: start: 20061118
  3. CIPROFLOXACIN [Suspect]
     Indication: CELLULITIS
  4. VANCOMYCIN [Concomitant]
     Route: 042
  5. CIPROFLOXACIN [Suspect]
     Dosage: 500 MG, UNK
     Dates: start: 20051214
  6. LEVAQUIN [Suspect]
     Indication: INFECTION
     Dosage: UNK
     Route: 048
     Dates: start: 20071104

REACTIONS (1)
  - TENDON DISORDER [None]
